FAERS Safety Report 4947471-X (Version None)
Quarter: 2006Q1

REPORT INFORMATION
  Report Type: 
  Country: None (occurrence: None)
  Receive Date: 20060313
  Receipt Date: 20060228
  Transmission Date: 20060701
  Serious: Yes (Other)
  Sender: FDA-Public Use
  Company Number: 2006030432

PATIENT
  Sex: Female
  Weight: 88.4514 kg

DRUGS (13)
  1. LIPITOR [Suspect]
     Indication: BLOOD CHOLESTEROL INCREASED
     Dosage: 20 MG (20 MG, 1 IN 1 D)
  2. METFORMIN HCL [Suspect]
     Indication: DIABETES MELLITUS
  3. AMARYL [Concomitant]
  4. ZOLOFT [Concomitant]
  5. ACTOS [Concomitant]
  6. FUROSEMIDE [Concomitant]
  7. KLOR-CON [Concomitant]
  8. PENTASA [Concomitant]
  9. MECLIZINE [Concomitant]
  10. MULTIVITAMIN [Concomitant]
  11. ALL OTHER THERAPEUTIC PRODUCTS (ALL OTHER THERAPEUTIC PRODUCTS) [Concomitant]
  12. ALEVE [Concomitant]
  13. XALATAN [Concomitant]

REACTIONS (5)
  - BREAST CANCER [None]
  - COLITIS [None]
  - HYPERTENSION [None]
  - IRON DEFICIENCY ANAEMIA [None]
  - MYALGIA [None]
